FAERS Safety Report 22051011 (Version 2)
Quarter: 2023Q1

REPORT INFORMATION
  Report Type: Spontaneous
  Country: TR (occurrence: TR)
  Receive Date: 20230301
  Receipt Date: 20230316
  Transmission Date: 20230417
  Serious: Yes (Hospitalization)
  Sender: FDA-Public Use
  Company Number: TR-TEVA-2023-TR-2860761

PATIENT
  Age: 35 Year
  Sex: Female

DRUGS (1)
  1. GLATIRAMER ACETATE [Suspect]
     Active Substance: GLATIRAMER ACETATE
     Indication: Relapsing-remitting multiple sclerosis
     Dosage: FORM STRENGTH: UNKNOWN
     Route: 058

REACTIONS (1)
  - Embolia cutis medicamentosa [Recovered/Resolved with Sequelae]

NARRATIVE: CASE EVENT DATE: 20180601
